FAERS Safety Report 7917090-1 (Version None)
Quarter: 2011Q4

REPORT INFORMATION
  Report Type: 
  Country: None (occurrence: None)
  Receive Date: 20111114
  Receipt Date: 20111102
  Transmission Date: 20120403
  Serious: Yes (Other)
  Sender: FDA-Public Use
  Company Number: SI-CUBIST-2011S1000488

PATIENT
  Age: 52 Year
  Sex: Female

DRUGS (2)
  1. CUBICIN [Suspect]
     Indication: STAPHYLOCOCCAL SEPSIS
     Route: 042
  2. CUBICIN [Suspect]
     Indication: SKIN ULCER
     Route: 042

REACTIONS (4)
  - COAGULOPATHY [None]
  - OLIGURIA [None]
  - LACTIC ACIDOSIS [None]
  - PROTHROMBIN TIME PROLONGED [None]
